FAERS Safety Report 8593182-1 (Version None)
Quarter: 2012Q3

REPORT INFORMATION
  Report Type: 
  Country: None (occurrence: None)
  Receive Date: 20120814
  Receipt Date: 20120809
  Transmission Date: 20120928
  Serious: Yes (Hospitalization)
  Sender: FDA-Public Use
  Company Number: US-PFIZER INC-2012195029

PATIENT
  Age: 68 Year
  Sex: Female
  Weight: 79.365 kg

DRUGS (11)
  1. FISH OIL [Concomitant]
     Dosage: UNK
  2. MULTI-VITAMINS [Concomitant]
     Dosage: UNK
  3. LEVOXYL [Concomitant]
     Indication: THYROID DISORDER
     Dosage: 50 UG, UNK
  4. VITAMIN E [Concomitant]
     Dosage: UNK
  5. ADVIL [Suspect]
     Indication: HEADACHE
     Dosage: 200 MG, AS NEEDED
     Route: 048
  6. ASCORBIC ACID [Concomitant]
     Dosage: UNK
  7. VITAMIN D [Concomitant]
     Dosage: UNK
  8. NIFEDIPINE [Concomitant]
     Indication: HYPERTENSION
     Dosage: 60 MG, UNK
  9. GABAPENTIN [Concomitant]
     Dosage: 100 MG, UNK
  10. BLACK COHOSH [Concomitant]
     Indication: HOT FLUSH
     Dosage: UNK
  11. LOSARTAN [Concomitant]
     Indication: HYPERTENSION
     Dosage: 25 MG, UNK

REACTIONS (1)
  - LUNG NEOPLASM MALIGNANT [None]
